FAERS Safety Report 6716480-2 (Version None)
Quarter: 2010Q2

REPORT INFORMATION
  Report Type: 
  Country: None (occurrence: None)
  Receive Date: 20100507
  Receipt Date: 20100504
  Transmission Date: 20101027
  Serious: Yes (Death)
  Sender: FDA-Public Use
  Company Number: US-CELGENEUS-163-21880-10050282

PATIENT
  Sex: Male

DRUGS (4)
  1. REVLIMID [Suspect]
     Indication: MULTIPLE MYELOMA
     Route: 048
     Dates: start: 20060201, end: 20060301
  2. REVLIMID [Suspect]
     Route: 048
     Dates: start: 20060301, end: 20070101
  3. REVLIMID [Suspect]
     Route: 048
     Dates: start: 20070301, end: 20100201
  4. REVLIMID [Suspect]
     Route: 048
     Dates: start: 20100301, end: 20100101

REACTIONS (1)
  - DEATH [None]
